FAERS Safety Report 6638139-2 (Version None)
Quarter: 2010Q1

REPORT INFORMATION
  Report Type: 
  Country: None (occurrence: None)
  Receive Date: 20100315
  Receipt Date: 20100315
  Transmission Date: 20100710
  Serious: Yes (Hospitalization)
  Sender: FDA-Public Use
  Company Number: None

PATIENT
  Age: 35 Year
  Sex: Female
  Weight: 70.4 kg

DRUGS (4)
  1. ERLOTINIB - NOT SUSPECTED TO BE CAUSE OF EVENT [Suspect]
     Indication: NON-SMALL CELL LUNG CANCER STAGE IV
     Dosage: 150 MG PO DAILY
     Route: 048
     Dates: start: 20100212, end: 20100303
  2. ENOXAPARIN SODIUM [Concomitant]
  3. LORAZEPAM [Concomitant]
  4. PAROXETINE HCL [Concomitant]

REACTIONS (1)
  - GASTROENTERITIS VIRAL [None]
